FAERS Safety Report 23885507 (Version 1)
Quarter: 2024Q2

REPORT INFORMATION
  Report Type: Spontaneous
  Country: ID (occurrence: ID)
  Receive Date: 20240522
  Receipt Date: 20240522
  Transmission Date: 20240716
  Serious: Yes (Life-Threatening, Hospitalization, Other)
  Sender: FDA-Public Use
  Company Number: ID-SUN PHARMACEUTICAL INDUSTRIES LTD-2024R1-447065

PATIENT
  Age: 32 Year
  Sex: Female

DRUGS (3)
  1. SODIUM CHLORIDE [Suspect]
     Active Substance: SODIUM CHLORIDE
     Indication: Prophylaxis
     Dosage: UNK
     Route: 065
  2. LACTATED RINGERS SOLUTION [Suspect]
     Active Substance: CALCIUM CHLORIDE\POTASSIUM CHLORIDE\SODIUM CHLORIDE\SODIUM LACTATE
     Indication: Prophylaxis
     Dosage: 3500 MILLILITER
     Route: 065
  3. SUCCINYLATED GELATIN [Suspect]
     Active Substance: SUCCINYLATED GELATIN
     Indication: Prophylaxis
     Dosage: 1000 MILLILITER
     Route: 065

REACTIONS (1)
  - Transfusion-related acute lung injury [Unknown]
